FAERS Safety Report 23848454 (Version 1)
Quarter: 2024Q2

REPORT INFORMATION
  Report Type: Spontaneous
  Country: TW (occurrence: TW)
  Receive Date: 20240513
  Receipt Date: 20240513
  Transmission Date: 20240716
  Serious: Yes (Hospitalization, Other)
  Sender: FDA-Public Use
  Company Number: TW-DSJP-DSJ-2024-119944

PATIENT
  Age: 83 Year
  Sex: Male
  Weight: 70 kg

DRUGS (1)
  1. EDOXABAN [Suspect]
     Active Substance: EDOXABAN
     Indication: Atrial fibrillation
     Dosage: 30 MG, QD
     Route: 048

REACTIONS (10)
  - Gastrooesophageal reflux disease [Unknown]
  - Pyuria [Unknown]
  - Hypovolaemic shock [Unknown]
  - Proctitis [Unknown]
  - Large intestinal ulcer [Unknown]
  - Diverticulum [Unknown]
  - Rectal ulcer [Unknown]
  - Angiodysplasia [Unknown]
  - Gastrointestinal haemorrhage [Unknown]
  - Haematuria [Unknown]
